FAERS Safety Report 4691443-X (Version None)
Quarter: 2005Q2

REPORT INFORMATION
  Report Type: 
  Country: None (occurrence: None)
  Receive Date: 20050613
  Receipt Date: 20050406
  Transmission Date: 20051028
  Serious: Yes (Other)
  Sender: FDA-Public Use
  Company Number: S04-USA-07990-01

PATIENT
  Age: 40 Year
  Sex: Female

DRUGS (3)
  1. LEXAPRO [Suspect]
     Indication: DEPRESSION
     Dosage: 10 MG QHS PO
     Route: 048
     Dates: start: 20030907, end: 20030909
  2. LEXAPRO [Suspect]
     Indication: FIBROMYALGIA
     Dosage: 10 MG QHS PO
     Route: 048
     Dates: start: 20030907, end: 20030909
  3. ORAL CONTRACEPTIVE [Concomitant]

REACTIONS (5)
  - ANXIETY [None]
  - DIARRHOEA [None]
  - HOT FLUSH [None]
  - PANIC ATTACK [None]
  - VOMITING [None]
